FAERS Safety Report 4711525-3 (Version None)
Quarter: 2005Q3

REPORT INFORMATION
  Report Type: 
  Country: None (occurrence: None)
  Receive Date: 20050708
  Receipt Date: 20050708
  Transmission Date: 20060218
  Serious: Yes (Other)
  Sender: FDA-Public Use
  Company Number: None

PATIENT
  Sex: Female
  Weight: 57.6068 kg

DRUGS (5)
  1. HYDROCODONE BITARTRATE AND ACETAMINOPHEN [Suspect]
     Indication: PAIN
     Dosage: 2 TABS BY MOUTH EVERY 6 HOURS AS NEEDED
     Route: 048
     Dates: start: 20050627, end: 20050628
  2. EVISTA [Concomitant]
  3. MULTI-VITAMIN [Concomitant]
  4. CHONDROITIN/ GLUCOSAMINE [Concomitant]
  5. ASCORBIC ACID [Concomitant]

REACTIONS (6)
  - CONSTIPATION [None]
  - DIZZINESS [None]
  - FEELING ABNORMAL [None]
  - FLUSHING [None]
  - PRURITUS [None]
  - STOMACH DISCOMFORT [None]
